FAERS Safety Report 10760887 (Version 1)
Quarter: 2015Q1

REPORT INFORMATION
  Report Type: Other
  Country: DE (occurrence: DE)
  Receive Date: 20150204
  Receipt Date: 20150204
  Transmission Date: 20150721
  Serious: Yes (Congenital Anomaly, Other)
  Sender: FDA-Public Use
  Company Number: DE-SUN PHARMACEUTICAL INDUSTRIES LTD-2015SUN00291

PATIENT

DRUGS (3)
  1. ASS 100 [Concomitant]
     Active Substance: ASPIRIN
     Indication: ULTRASOUND DOPPLER ABNORMAL
     Dosage: 100 MG/DAY
     Route: 064
     Dates: start: 20140130, end: 20140513
  2. OLANZAPINE 5 MG TABLETS [Suspect]
     Active Substance: OLANZAPINE
     Indication: SLEEP DISORDER
     Dosage: 2.5 MG/DAY
     Route: 064
  3. AMITRIPTYLIN [Suspect]
     Active Substance: AMITRIPTYLINE
     Indication: DEPRESSION
     Dosage: 10 MG/DAY
     Route: 064
     Dates: start: 20130907, end: 20140608

REACTIONS (4)
  - Cleft lip [Unknown]
  - Small for dates baby [Unknown]
  - Foetal exposure during pregnancy [Unknown]
  - Caesarean section [None]

NARRATIVE: CASE EVENT DATE: 20140608
